FAERS Safety Report 19574604 (Version 1)
Quarter: 2021Q3

REPORT INFORMATION
  Report Type: Spontaneous
  Country: US (occurrence: US)
  Receive Date: 20210719
  Receipt Date: 20210719
  Transmission Date: 20211014
  Serious: No
  Sender: FDA-Public Use
  Company Number: US-TEVA-2021-US-1931975

PATIENT
  Age: 62 Year
  Sex: Female
  Weight: 58.06 kg

DRUGS (7)
  1. AJOVY [Suspect]
     Active Substance: FREMANEZUMAB-VFRM
     Dosage: DELAYED BY A WEEK
     Route: 065
     Dates: start: 202012
  2. EXCEDRIN [Concomitant]
     Active Substance: ACETAMINOPHEN\ASPIRIN\CAFFEINE
     Indication: MIGRAINE
  3. AJOVY [Suspect]
     Active Substance: FREMANEZUMAB-VFRM
     Dosage: DELAYED BY A WEEK
     Route: 065
     Dates: start: 202011
  4. AJOVY [Suspect]
     Active Substance: FREMANEZUMAB-VFRM
     Dosage: SEVEN WEEKS AND FOUR DAYS AFTER HER LAST DOSE
     Route: 065
     Dates: start: 20210211
  5. AJOVY [Suspect]
     Active Substance: FREMANEZUMAB-VFRM
     Dosage: 34 DAYS AFTER HER LAST DOSE
     Route: 065
     Dates: start: 202103
  6. AJOVY [Suspect]
     Active Substance: FREMANEZUMAB-VFRM
     Indication: MIGRAINE
     Route: 065
     Dates: start: 201901
  7. AJOVY [Suspect]
     Active Substance: FREMANEZUMAB-VFRM
     Dosage: TWO AND A HALF WEEKS LATE
     Route: 065
     Dates: start: 20210502

REACTIONS (6)
  - Initial insomnia [Not Recovered/Not Resolved]
  - Product prescribing error [Unknown]
  - Eyelash injury [Recovering/Resolving]
  - Hair texture abnormal [Recovering/Resolving]
  - Gastrointestinal disorder [Recovering/Resolving]
  - Inappropriate schedule of product administration [Unknown]

NARRATIVE: CASE EVENT DATE: 202011
